FAERS Safety Report 6781663-2 (Version None)
Quarter: 2010Q2

REPORT INFORMATION
  Report Type: 
  Country: None (occurrence: None)
  Receive Date: 20100621
  Receipt Date: 20100602
  Transmission Date: 20101027
  Serious: No
  Sender: FDA-Public Use
  Company Number: CA-B.I. PHARMACEUTICALS,INC./RIDGEFIELD-2010-BP-06256BP

PATIENT
  Sex: Female

DRUGS (1)
  1. MIRAPEX [Suspect]
     Indication: PARKINSON'S DISEASE
     Dates: start: 20071001, end: 20090301

REACTIONS (2)
  - PATHOLOGICAL GAMBLING [None]
  - PERSONALITY CHANGE [None]
